FAERS Safety Report 12646740 (Version 4)
Quarter: 2018Q3

REPORT INFORMATION
  Report Type: Spontaneous
  Country: GB (occurrence: GB)
  Receive Date: 20160812
  Receipt Date: 20180827
  Transmission Date: 20181010
  Serious: Yes (Other)
  Sender: FDA-Public Use
  Company Number: GB-CIPLA LTD.-2016GB09741

PATIENT

DRUGS (8)
  1. METOCLOPRAMIDE. [Concomitant]
     Active Substance: METOCLOPRAMIDE
     Indication: PRODUCT USED FOR UNKNOWN INDICATION
     Dosage: UNK
     Route: 065
  2. FLUOROURACIL. [Suspect]
     Active Substance: FLUOROURACIL
     Indication: PRODUCT USED FOR UNKNOWN INDICATION
     Dosage: 1008 MG, CYCLE 1/6, BY A PAXMAN COOLER
     Route: 042
     Dates: start: 20160608
  3. ONDANSETRON [Suspect]
     Active Substance: ONDANSETRON
     Indication: PRODUCT USED FOR UNKNOWN INDICATION
     Dosage: 8 MG, UNK
     Route: 042
  4. EPIRUBICIN [Suspect]
     Active Substance: EPIRUBICIN
     Indication: PRODUCT USED FOR UNKNOWN INDICATION
     Dosage: 126 MG, UNK
     Route: 042
     Dates: start: 20160608
  5. DEXAMETHASONE. [Suspect]
     Active Substance: DEXAMETHASONE
     Indication: PRODUCT USED FOR UNKNOWN INDICATION
     Dosage: 8 MG, QD
     Route: 042
  6. CYCLOPHOSPHAMIDE. [Suspect]
     Active Substance: CYCLOPHOSPHAMIDE
     Indication: PRODUCT USED FOR UNKNOWN INDICATION
     Dosage: 0.9 MG, QD, CYCLE 1/6, BY A PAXMAN SCALP COOLER
     Route: 042
     Dates: start: 20160608
  7. APREPITANT. [Suspect]
     Active Substance: APREPITANT
     Indication: PRODUCT USED FOR UNKNOWN INDICATION
     Dosage: 125 MG, QD
     Route: 048
  8. NEULASTA [Suspect]
     Active Substance: PEGFILGRASTIM
     Indication: PRODUCT USED FOR UNKNOWN INDICATION
     Dosage: 6 MG, UNK
     Route: 058

REACTIONS (24)
  - Feeling abnormal [Unknown]
  - Lethargy [Unknown]
  - Glossodynia [Unknown]
  - Alopecia [Unknown]
  - Fatigue [Unknown]
  - Oropharyngeal pain [Unknown]
  - Dyspnoea [Unknown]
  - Headache [Unknown]
  - Lower respiratory tract infection [Unknown]
  - Ear pain [Unknown]
  - Cough [Unknown]
  - Hypophagia [Unknown]
  - Odynophagia [Unknown]
  - Productive cough [Unknown]
  - Intercepted drug administration error [Unknown]
  - Nausea [Unknown]
  - Vomiting [Unknown]
  - Body temperature abnormal [Unknown]
  - Pharyngeal erythema [Unknown]
  - Malaise [Unknown]
  - Sputum discoloured [Unknown]
  - Eating disorder [Unknown]
  - Oral pain [Unknown]
  - Diarrhoea [Unknown]

NARRATIVE: CASE EVENT DATE: 201606
